FAERS Safety Report 8523705-X (Version None)
Quarter: 2012Q3

REPORT INFORMATION
  Report Type: 
  Country: None (occurrence: None)
  Receive Date: 20120720
  Receipt Date: 20120718
  Transmission Date: 20120928
  Serious: Yes (Death, Other)
  Sender: FDA-Public Use
  Company Number: US-ELI_LILLY_AND_COMPANY-US201203008473

PATIENT
  Sex: Female
  Weight: 61.224 kg

DRUGS (5)
  1. GEMZAR [Suspect]
     Indication: GALLBLADDER CANCER STAGE IV
     Dosage: 1600 MG DAY 1 + 8 EVERY 21 DAYS
     Route: 042
     Dates: start: 20110307, end: 20110404
  2. ROXANOL [Concomitant]
     Indication: PAIN
  3. LORAZEPAM [Concomitant]
     Indication: ANXIETY
  4. IBUPROFEN [Concomitant]
     Indication: PYREXIA
     Dosage: 200 MG, UNK
  5. FENTANYL [Concomitant]
     Indication: PAIN
     Route: 062

REACTIONS (1)
  - NEOPLASM PROGRESSION [None]
